FAERS Safety Report 7721259-9 (Version None)
Quarter: 2011Q3

REPORT INFORMATION
  Report Type: 
  Country: None (occurrence: None)
  Receive Date: 20110831
  Receipt Date: 20110829
  Transmission Date: 20111222
  Serious: Yes (Hospitalization)
  Sender: FDA-Public Use
  Company Number: US-SHIRE-ALL1-2011-02571

PATIENT
  Sex: Male
  Weight: 27.664 kg

DRUGS (2)
  1. CLARITIN                           /00917501/ [Concomitant]
     Indication: SEASONAL ALLERGY
     Dosage: UNK UNK, 1X/DAY:QD
     Route: 048
  2. ADDERALL XR 10 [Suspect]
     Indication: ATTENTION DEFICIT/HYPERACTIVITY DISORDER
     Dosage: 5 MG, 1X/DAY:QD
     Route: 048
     Dates: start: 20100101, end: 20110601

REACTIONS (2)
  - CONTUSION [None]
  - PLATELET COUNT DECREASED [None]
